FAERS Safety Report 16877858 (Version 12)
Quarter: 2022Q1

REPORT INFORMATION
  Report Type: Spontaneous
  Country: JP (occurrence: JP)
  Receive Date: 20191002
  Receipt Date: 20220217
  Transmission Date: 20220423
  Serious: Yes (Hospitalization, Other)
  Sender: FDA-Public Use
  Company Number: JP-ONO-2019JP031946

PATIENT
  Age: 65 Year
  Sex: Female
  Weight: 54.9 kg

DRUGS (54)
  1. PARSABIV [Suspect]
     Active Substance: ETELCALCETIDE HYDROCHLORIDE
     Indication: Hyperparathyroidism secondary
     Dosage: 5 MILLIGRAM, Q56H
     Route: 010
     Dates: start: 20180712, end: 20181222
  2. PARSABIV [Suspect]
     Active Substance: ETELCALCETIDE HYDROCHLORIDE
     Dosage: 2.5 MILLIGRAM, Q56H
     Route: 010
     Dates: start: 20181225, end: 20190323
  3. PARSABIV [Suspect]
     Active Substance: ETELCALCETIDE HYDROCHLORIDE
     Dosage: 5 MILLIGRAM, Q56H
     Route: 010
     Dates: start: 20190326, end: 20200316
  4. PARSABIV [Suspect]
     Active Substance: ETELCALCETIDE HYDROCHLORIDE
     Dosage: 7.5 MILLIGRAM, Q56H
     Route: 010
     Dates: start: 20200317, end: 20200410
  5. PARSABIV [Suspect]
     Active Substance: ETELCALCETIDE HYDROCHLORIDE
     Dosage: 10 MILLIGRAM, Q56H
     Route: 010
     Dates: start: 20200413, end: 20210807
  6. PARSABIV [Suspect]
     Active Substance: ETELCALCETIDE HYDROCHLORIDE
     Dosage: 15 MILLIGRAM, Q56H
     Route: 010
     Dates: start: 20210810
  7. DARBEPOETIN ALFA [Concomitant]
     Active Substance: DARBEPOETIN ALFA
     Dosage: 30 MICROGRAM, QWK
     Route: 065
     Dates: end: 20180703
  8. DARBEPOETIN ALFA [Concomitant]
     Active Substance: DARBEPOETIN ALFA
     Dosage: 20 MICROGRAM, QWK
     Route: 065
     Dates: start: 20180710, end: 20181002
  9. DARBEPOETIN ALFA [Concomitant]
     Active Substance: DARBEPOETIN ALFA
     Dosage: 10 MICROGRAM, QWK
     Route: 065
     Dates: start: 20181009, end: 20190108
  10. DARBEPOETIN ALFA [Concomitant]
     Active Substance: DARBEPOETIN ALFA
     Dosage: 20 MICROGRAM, QWK
     Route: 065
     Dates: start: 20190115, end: 20190205
  11. DARBEPOETIN ALFA [Concomitant]
     Active Substance: DARBEPOETIN ALFA
     Dosage: 30 MICROGRAM, QWK
     Route: 065
     Dates: start: 20190212, end: 20190305
  12. DARBEPOETIN ALFA [Concomitant]
     Active Substance: DARBEPOETIN ALFA
     Dosage: 40 MICROGRAM, QWK
     Route: 065
     Dates: start: 20190312, end: 20190416
  13. DARBEPOETIN ALFA [Concomitant]
     Active Substance: DARBEPOETIN ALFA
     Dosage: 20 MICROGRAM, QWK
     Route: 065
     Dates: start: 20190423, end: 20190604
  14. DARBEPOETIN ALFA [Concomitant]
     Active Substance: DARBEPOETIN ALFA
     Dosage: 10 MICROGRAM, QWK
     Route: 065
     Dates: start: 20190611, end: 20190806
  15. DARBEPOETIN ALFA [Concomitant]
     Active Substance: DARBEPOETIN ALFA
     Dosage: 20 MICROGRAM, QWK
     Route: 065
     Dates: start: 20190813, end: 20190903
  16. DARBEPOETIN ALFA [Concomitant]
     Active Substance: DARBEPOETIN ALFA
     Dosage: 40 MICROGRAM, QWK
     Route: 065
     Dates: start: 20190910, end: 20191119
  17. DARBEPOETIN ALFA [Concomitant]
     Active Substance: DARBEPOETIN ALFA
     Dosage: 20 MICROGRAM, QWK
     Route: 065
     Dates: start: 20191126, end: 20191203
  18. DARBEPOETIN ALFA [Concomitant]
     Active Substance: DARBEPOETIN ALFA
     Dosage: 10 MICROGRAM, QWK
     Route: 065
     Dates: start: 20191210, end: 20200310
  19. DARBEPOETIN ALFA [Concomitant]
     Active Substance: DARBEPOETIN ALFA
     Dosage: 30 MICROGRAM, QWK
     Route: 065
     Dates: start: 20200317, end: 20200421
  20. DARBEPOETIN ALFA [Concomitant]
     Active Substance: DARBEPOETIN ALFA
     Dosage: 20 MICROGRAM, QWK
     Route: 065
     Dates: start: 20200428, end: 20200924
  21. DARBEPOETIN ALFA [Concomitant]
     Active Substance: DARBEPOETIN ALFA
     Dosage: 10 MICROGRAM, QWK
     Route: 065
     Dates: start: 20200929, end: 20201103
  22. DARBEPOETIN ALFA [Concomitant]
     Active Substance: DARBEPOETIN ALFA
     Dosage: 20 MICROGRAM, QWK
     Route: 065
     Dates: start: 20201119
  23. ROCALTROL [Concomitant]
     Active Substance: CALCITRIOL
     Dosage: 0.5 UG, Q84H
     Route: 051
     Dates: end: 20180721
  24. ROCALTROL [Concomitant]
     Active Substance: CALCITRIOL
     Dosage: 0.5 UG, Q56H
     Route: 051
     Dates: start: 20180723, end: 20180731
  25. ROCALTROL [Concomitant]
     Active Substance: CALCITRIOL
     Dosage: 1.0 UG, Q56H
     Route: 051
     Dates: start: 20180802, end: 20181006
  26. ROCALTROL [Concomitant]
     Active Substance: CALCITRIOL
     Dosage: 1.0 UG, Q84H
     Route: 051
     Dates: start: 20181009, end: 20181110
  27. ROCALTROL [Concomitant]
     Active Substance: CALCITRIOL
     Dosage: 1.0 UG, QW
     Route: 051
     Dates: start: 20181113, end: 20190112
  28. ROCALTROL [Concomitant]
     Active Substance: CALCITRIOL
     Dosage: 1.0 UG, Q84H
     Route: 051
     Dates: start: 20190115, end: 20190126
  29. ROCALTROL [Concomitant]
     Active Substance: CALCITRIOL
     Dosage: 1.0 UG, Q56H
     Route: 051
     Dates: start: 20190129, end: 20191109
  30. ROCALTROL [Concomitant]
     Active Substance: CALCITRIOL
     Dosage: 1 UG, Q84H
     Route: 051
     Dates: start: 20191112, end: 20191207
  31. ROCALTROL [Concomitant]
     Active Substance: CALCITRIOL
     Dosage: 1 UG, Q56H
     Route: 051
     Dates: start: 20191210, end: 20200516
  32. ROCALTROL [Concomitant]
     Active Substance: CALCITRIOL
     Dosage: 1 UG, Q84H
     Route: 051
     Dates: start: 20200519, end: 20200613
  33. ROCALTROL [Concomitant]
     Active Substance: CALCITRIOL
     Dosage: 1 UG, Q56H
     Route: 051
     Dates: start: 20200616, end: 20200808
  34. ROCALTROL [Concomitant]
     Active Substance: CALCITRIOL
     Dosage: 1 UG, Q84H
     Route: 051
     Dates: start: 20200811, end: 20201212
  35. ROCALTROL [Concomitant]
     Active Substance: CALCITRIOL
     Dosage: 1 UG, Q56H
     Route: 051
     Dates: start: 20201215, end: 20210123
  36. ROCALTROL [Concomitant]
     Active Substance: CALCITRIOL
     Dosage: 1 UG, Q84H
     Route: 051
     Dates: start: 20210126, end: 20210911
  37. ROCALTROL [Concomitant]
     Active Substance: CALCITRIOL
     Dosage: 0.5 UG, Q84H
     Route: 051
     Dates: end: 20180721
  38. ROCALTROL [Concomitant]
     Active Substance: CALCITRIOL
     Dosage: 0.5 UG, Q56H
     Route: 051
     Dates: start: 20180723, end: 20180731
  39. ROCALTROL [Concomitant]
     Active Substance: CALCITRIOL
     Dosage: 1 MUG, Q56H
     Route: 051
     Dates: start: 20210914
  40. OLMESARTAN MEDOXOMIL [Concomitant]
     Active Substance: OLMESARTAN MEDOXOMIL
     Indication: Hypertension
     Dosage: 20 MG, Q12H
     Route: 048
  41. NORVASC [Concomitant]
     Active Substance: AMLODIPINE BESYLATE
     Indication: Hypertension
     Dosage: 5 MILLIGRAM, Q12H
     Route: 048
  42. FOSRENOL [Concomitant]
     Active Substance: LANTHANUM CARBONATE
     Indication: Hyperphosphataemia
     Dosage: 1000 MG, EVERYDAY
     Route: 048
     Dates: end: 20190826
  43. FOSRENOL [Concomitant]
     Active Substance: LANTHANUM CARBONATE
     Dosage: 500 MILLIGRAM, Q8H
     Route: 048
     Dates: start: 20190827
  44. CALCIUM CARBONATE [Concomitant]
     Active Substance: CALCIUM CARBONATE
     Indication: Hyperphosphataemia
     Dosage: 500 MILLIGRAM, Q8H
     Route: 048
  45. MOSAPRIDE CITRATE [Concomitant]
     Active Substance: MOSAPRIDE CITRATE
     Dosage: 5 MILLIGRAM, Q8H
     Route: 048
  46. FEBUXOSTAT [Concomitant]
     Active Substance: FEBUXOSTAT
     Dosage: 10 MG
     Route: 048
  47. NEXIUM [Concomitant]
     Active Substance: ESOMEPRAZOLE MAGNESIUM
     Dosage: 20 MILLIGRAM
     Route: 048
  48. CARDENALIN [Concomitant]
     Active Substance: DOXAZOSIN MESYLATE
     Dosage: 2 MG, EVERYDAY
     Route: 048
  49. ZETIA [Concomitant]
     Active Substance: EZETIMIBE
     Dosage: 10 MG, EVERYDAY
     Route: 048
  50. KAYEXALATE [Concomitant]
     Active Substance: SODIUM POLYSTYRENE SULFONATE
     Dosage: 1 DF, Q8H
     Route: 048
  51. IRON SUCROSE [Concomitant]
     Active Substance: IRON SUCROSE
     Dosage: 40 MILLIGRAM, QWK
     Route: 065
     Dates: start: 20180710, end: 20180925
  52. IRON SUCROSE [Concomitant]
     Active Substance: IRON SUCROSE
     Dosage: 40 MILLIGRAM, QWK
     Route: 065
     Dates: start: 20191029, end: 20191224
  53. IRON SUCROSE [Concomitant]
     Active Substance: IRON SUCROSE
     Dosage: 40 MILLIGRAM, QWK
     Route: 065
     Dates: start: 20201027, end: 20201222
  54. IRON SUCROSE [Concomitant]
     Active Substance: IRON SUCROSE
     Dosage: 40 MILLIGRAM, QWK
     Route: 065
     Dates: start: 20210427, end: 20210623

REACTIONS (1)
  - Colitis ischaemic [Recovered/Resolved]

NARRATIVE: CASE EVENT DATE: 20190909
